FAERS Safety Report 14189123 (Version 1)
Quarter: 2017Q4

REPORT INFORMATION
  Report Type: Spontaneous
  Country: US (occurrence: US)
  Receive Date: 20171115
  Receipt Date: 20171115
  Transmission Date: 20180321
  Serious: Yes (Death)
  Sender: FDA-Public Use
  Company Number: US-ASTRAZENECA-2017SF15548

PATIENT
  Age: 53 Year
  Sex: Male
  Weight: 58.1 kg

DRUGS (3)
  1. BEVESPI AEROSPHERE [Suspect]
     Active Substance: FORMOTEROL FUMARATE\GLYCOPYRROLATE
     Indication: CHRONIC OBSTRUCTIVE PULMONARY DISEASE
     Dosage: 9 MCG/4.8 MCG 2 PUFFS TWICE DAY
     Route: 055
     Dates: start: 20170912
  2. VENTOLIN HFA [Concomitant]
     Active Substance: ALBUTEROL SULFATE
     Route: 055
  3. THEOPHYLLINE [Concomitant]
     Active Substance: THEOPHYLLINE ANHYDROUS
     Route: 048

REACTIONS (7)
  - Tenderness [Unknown]
  - Mass [Unknown]
  - Headache [Unknown]
  - Herpes zoster [Unknown]
  - Rash [Unknown]
  - Swelling face [Unknown]
  - Death [Fatal]

NARRATIVE: CASE EVENT DATE: 20170921
